FAERS Safety Report 7358518-8 (Version None)
Quarter: 2011Q1

REPORT INFORMATION
  Report Type: 
  Country: None (occurrence: None)
  Receive Date: 20110317
  Receipt Date: 20110311
  Transmission Date: 20110831
  Serious: Yes (Other)
  Sender: FDA-Public Use
  Company Number: US-PFIZER INC-2006069856

PATIENT
  Sex: Female

DRUGS (9)
  1. NEURONTIN [Suspect]
     Dosage: UNK
     Dates: start: 20020202, end: 20020203
  2. NEURONTIN [Suspect]
     Dosage: 300MG, ONCE IN EVENING OR BID
     Dates: start: 19991216
  3. NEURONTIN [Suspect]
     Dosage: 800 MG, 2X/DAY
     Dates: start: 20000718
  4. NEURONTIN [Suspect]
     Indication: ILL-DEFINED DISORDER
     Dosage: 400 MG, 3X/DAY
     Dates: start: 19980810, end: 19980814
  5. NEURONTIN [Suspect]
     Dosage: 800 MG, 4X/DAY
     Dates: start: 20010808
  6. NEURONTIN [Suspect]
     Dosage: UNK
     Dates: start: 20010618
  7. NEURONTIN [Suspect]
     Dosage: 800 MG, 4X/DAY
     Route: 048
     Dates: start: 20020326
  8. NEURONTIN [Suspect]
     Dosage: 400MG, BID OR TID
     Dates: start: 20000410
  9. NEURONTIN [Suspect]
     Dosage: 800 MG, 4X/DAY
     Route: 048
     Dates: start: 20020130

REACTIONS (2)
  - SUICIDE ATTEMPT [None]
  - INTENTIONAL OVERDOSE [None]
